FAERS Safety Report 17744325 (Version 1)
Quarter: 2020Q2

REPORT INFORMATION
  Report Type: Spontaneous
  Country: DE (occurrence: DE)
  Receive Date: 20200504
  Receipt Date: 20200504
  Transmission Date: 20200714
  Serious: Yes (Other)
  Sender: FDA-Public Use
  Company Number: DE-AMGEN-DEUSP2020047563

PATIENT
  Age: 52 Year
  Sex: Female
  Weight: 50 kg

DRUGS (3)
  1. CYCLOPHOSPHAMIDE. [Suspect]
     Active Substance: CYCLOPHOSPHAMIDE
     Indication: BREAST CANCER
     Dosage: 600 MILLIGRAM/SQ. METER, Q2WK
     Route: 065
     Dates: start: 20200312, end: 20200323
  2. EPIRUBICIN [Suspect]
     Active Substance: EPIRUBICIN
     Indication: BREAST CANCER
     Dosage: 90 MILLIGRAM/SQ. METER, Q2WK
     Route: 065
     Dates: start: 20200312, end: 20200323
  3. NEULASTA [Suspect]
     Active Substance: PEGFILGRASTIM
     Indication: NEUTROPENIA
     Dosage: UNK UNK, EARLIEST 24 HOUR AFTER CHEMO
     Route: 065
     Dates: start: 20200313

REACTIONS (1)
  - Nausea [Recovered/Resolved]

NARRATIVE: CASE EVENT DATE: 20200313
